FAERS Safety Report 25664187 (Version 2)
Quarter: 2025Q3

REPORT INFORMATION
  Report Type: Report from Study
  Country: US (occurrence: US)
  Receive Date: 20250811
  Receipt Date: 20250912
  Transmission Date: 20251020
  Serious: Yes (Hospitalization, Other)
  Sender: SUNOVION
  Company Number: US-SUMITOMO PHARMA SWITZERLAND GMBH-2024SPA000507

PATIENT
  Age: 79 Year
  Sex: Male

DRUGS (3)
  1. ORGOVYX [Suspect]
     Active Substance: RELUGOLIX
     Indication: Prostate cancer
     Route: 048
  2. ORGOVYX [Suspect]
     Active Substance: RELUGOLIX
     Dosage: 120 MG, QD
     Route: 048
     Dates: start: 20230804
  3. NUBEQA [Concomitant]
     Active Substance: DAROLUTAMIDE
     Indication: Product used for unknown indication

REACTIONS (12)
  - Arthropathy [Unknown]
  - Arthritis bacterial [Unknown]
  - Blood pressure increased [Unknown]
  - COVID-19 [Unknown]
  - Gastroenteritis viral [Unknown]
  - Sneezing [Unknown]
  - Seasonal allergy [Unknown]
  - Insomnia [Unknown]
  - Asthenia [Unknown]
  - Back pain [Unknown]
  - Product dose omission in error [Recovered/Resolved]
  - Therapy interrupted [Recovered/Resolved]

NARRATIVE: CASE EVENT DATE: 20240701
